FAERS Safety Report 4811865-3 (Version None)
Quarter: 2005Q4

REPORT INFORMATION
  Report Type: 
  Country: None (occurrence: None)
  Receive Date: 20051028
  Receipt Date: 20041011
  Transmission Date: 20060501
  Serious: No
  Sender: FDA-Public Use
  Company Number: US-GLAXOSMITHKLINE-A0529343A

PATIENT
  Sex: Female

DRUGS (12)
  1. ADVAIR DISKUS 100/50 [Suspect]
     Indication: ASTHMA
     Dosage: 1PUFF TWICE PER DAY
     Route: 055
  2. CLARINEX [Concomitant]
  3. NASONEX [Concomitant]
  4. ALBUTEROL [Concomitant]
  5. VERAPAMIL [Concomitant]
  6. LASIX [Concomitant]
  7. PROTONIX [Concomitant]
  8. ASPIRIN [Concomitant]
  9. POTASSIUM SUPPLEMENT [Concomitant]
  10. LEVOTHROID [Concomitant]
  11. ULTRAM [Concomitant]
  12. XANAX [Concomitant]

REACTIONS (9)
  - BACK PAIN [None]
  - GASTROINTESTINAL DISORDER [None]
  - MIGRAINE [None]
  - MYALGIA [None]
  - NECK PAIN [None]
  - ORAL CANDIDIASIS [None]
  - PAINFUL RESPIRATION [None]
  - PYREXIA [None]
  - VOMITING [None]
